FAERS Safety Report 17591272 (Version 3)
Quarter: 2021Q2

REPORT INFORMATION
  Report Type: Spontaneous
  Country: US (occurrence: US)
  Receive Date: 20200327
  Receipt Date: 20210415
  Transmission Date: 20210716
  Serious: No
  Sender: FDA-Public Use
  Company Number: US-PFIZER INC-2020129280

PATIENT
  Age: 82 Year
  Sex: Female

DRUGS (2)
  1. RETACRIT [Suspect]
     Active Substance: EPOETIN ALFA-EPBX
     Dosage: 60000 IU EVERY 2 WEEKS
     Route: 058
  2. RETACRIT [Suspect]
     Active Substance: EPOETIN ALFA-EPBX
     Indication: IRON DEFICIENCY ANAEMIA
     Dosage: 10000 U/ML, UNK

REACTIONS (2)
  - Anaemia [Unknown]
  - Off label use [Unknown]
